FAERS Safety Report 6348437-8 (Version None)
Quarter: 2009Q3

REPORT INFORMATION
  Report Type: 
  Country: None (occurrence: None)
  Receive Date: 20090911
  Receipt Date: 20090902
  Transmission Date: 20100115
  Serious: Yes (Hospitalization)
  Sender: FDA-Public Use
  Company Number: US-BIOGENIDEC-2009BI022947

PATIENT
  Age: 53 Year
  Sex: Female
  Weight: 68 kg

DRUGS (3)
  1. AVONEX [Suspect]
     Indication: MULTIPLE SCLEROSIS
     Route: 030
     Dates: start: 20060101
  2. INDERAL [Concomitant]
     Indication: HYPERTENSION
     Route: 048
  3. REGLAN [Concomitant]
     Indication: CONSTIPATION
     Route: 048

REACTIONS (9)
  - ABDOMINAL PAIN [None]
  - CONSTIPATION [None]
  - GENERAL SYMPTOM [None]
  - HEART RATE IRREGULAR [None]
  - HYPERTENSION [None]
  - INJECTION SITE HAEMATOMA [None]
  - LABORATORY TEST ABNORMAL [None]
  - SCAR [None]
  - WHITE BLOOD CELL COUNT INCREASED [None]
